FAERS Safety Report 4356317-2 (Version None)
Quarter: 2004Q2

REPORT INFORMATION
  Report Type: 
  Country: None (occurrence: None)
  Receive Date: 20040506
  Receipt Date: 20040421
  Transmission Date: 20050107
  Serious: Yes (Hospitalization)
  Sender: FDA-Public Use
  Company Number: S04-GER-01931-01

PATIENT
  Age: 36 Year
  Sex: Male

DRUGS (16)
  1. CITALOPRAM HYDROBROMIDE [Suspect]
     Dosage: 20 MG QD
     Dates: start: 20030125, end: 20030304
  2. RISPERDAL [Suspect]
     Dosage: 3 MG QD
     Dates: start: 20020920, end: 20020923
  3. RISPERDAL [Suspect]
     Dosage: 4 MG QD
     Dates: start: 20020924, end: 20030109
  4. RISPERDAL [Suspect]
     Dosage: 5 MG QD
     Dates: start: 20030110, end: 20030121
  5. RISPERDAL [Suspect]
     Dosage: 6 MG QD
     Dates: start: 20030122
  6. LEPONEX (CLOZAPINE) (CLOZAPINE) [Suspect]
     Dosage: 12.5 MG QD
     Dates: start: 20030303
  7. LEPONEX (CLOZAPINE) (CLOZAPINE) [Suspect]
     Dosage: 25 MG QD
     Dates: start: 20030304
  8. ZYPREXA [Suspect]
     Dosage: 10 MG QD
     Dates: start: 20021018, end: 20021106
  9. ZYPREXA [Suspect]
     Dosage: 15 MG QD
     Dates: start: 20021107, end: 20021212
  10. ZYPREXA [Suspect]
     Dosage: 10 MG QD
     Dates: start: 20030306
  11. ZYPREXA [Suspect]
     Dosage: 20 MG QD
     Dates: start: 20021213, end: 20030305
  12. THEOPHYLLINE [Suspect]
     Dosage: 350 MG QD
     Dates: start: 20030303
  13. LORAZEPAM [Concomitant]
  14. ASPIRIN [Concomitant]
  15. PULMICORD (BUDESONIDE) [Concomitant]
  16. BEROTEC (FENOTEROL HYDROBROMIDE) [Concomitant]

REACTIONS (5)
  - DRUG INTERACTION [None]
  - FACIAL BONES FRACTURE [None]
  - FALL [None]
  - GRAND MAL CONVULSION [None]
  - SOMNOLENCE [None]
